FAERS Safety Report 17691848 (Version 3)
Quarter: 2020Q2

REPORT INFORMATION
  Report Type: Report from Study
  Country: CO (occurrence: CO)
  Receive Date: 20200422
  Receipt Date: 20200601
  Transmission Date: 20200714
  Serious: Yes (Hospitalization, Other)
  Sender: FDA-Public Use
  Company Number: CO-ASTELLAS-2019US050658

PATIENT
  Age: 57 Year
  Sex: Male
  Weight: 63 kg

DRUGS (11)
  1. PREDNISOLONE. [Concomitant]
     Active Substance: PREDNISOLONE
     Route: 048
  2. TACROLIMUS. [Suspect]
     Active Substance: TACROLIMUS
     Dosage: 8 MG, ONCE DAILY (1 CAPSULE OF 5MG AND 3 CAPSULE OF 1MG)
     Route: 048
     Dates: start: 20200312
  3. TACROLIMUS. [Suspect]
     Active Substance: TACROLIMUS
     Dosage: 6 MG, ONCE DAILY (1 CAPSULE OF 5MG AND 1 CAPSULE OF 1MG)
     Route: 048
     Dates: start: 20200214, end: 20200311
  4. PREDNISOLONE. [Concomitant]
     Active Substance: PREDNISOLONE
     Indication: RENAL TRANSPLANT
     Route: 048
     Dates: start: 19970626
  5. AZATHIOPRINE. [Concomitant]
     Active Substance: AZATHIOPRINE
     Indication: RENAL TRANSPLANT
     Dosage: 75 MG, ONCE DAILY (STARTED A YEAR AND A HALF AGO)
     Route: 048
  6. LOSARTAN. [Concomitant]
     Active Substance: LOSARTAN
     Indication: BLOOD PRESSURE MEASUREMENT
     Route: 048
  7. ALLOPURINOL. [Suspect]
     Active Substance: ALLOPURINOL
     Indication: BLOOD URIC ACID ABNORMAL
     Dosage: UNK UNK, UNKNOWN FREQ.
     Route: 065
  8. TAMSULOSIN [Concomitant]
     Active Substance: TAMSULOSIN
     Indication: PROSTATIC DISORDER
     Dosage: 0.4 MG, AT BEDTIME
     Route: 048
  9. TACROLIMUS. [Suspect]
     Active Substance: TACROLIMUS
     Indication: RENAL TRANSPLANT
     Dosage: 2 MG (2 CAPSULES OF 1MG), ONCE DAILY
     Route: 048
     Dates: start: 20190901, end: 20191209
  10. TACROLIMUS. [Suspect]
     Active Substance: TACROLIMUS
     Dosage: 4 MG (4 CAPSULES OF 1MG), ONCE DAILY
     Route: 048
     Dates: start: 20191210, end: 20200213
  11. AZATHIOPRINE. [Concomitant]
     Active Substance: AZATHIOPRINE
     Dosage: 100 MG, ONCE DAILY (2 TABLETS OF 50MG)
     Route: 048

REACTIONS (6)
  - Viral infection [Recovered/Resolved]
  - Immunosuppressant drug level decreased [Recovered/Resolved]
  - Device related infection [Recovered/Resolved]
  - Back pain [Recovered/Resolved]
  - Prostatitis [Recovering/Resolving]
  - Urinary tract infection [Recovered/Resolved]

NARRATIVE: CASE EVENT DATE: 20191128
